FAERS Safety Report 5166771-4 (Version None)
Quarter: 2006Q4

REPORT INFORMATION
  Report Type: 
  Country: None (occurrence: None)
  Receive Date: 20061129
  Receipt Date: 20061115
  Transmission Date: 20070319
  Serious: Yes (Life-Threatening)
  Sender: FDA-Public Use
  Company Number: 200611AGG00511

PATIENT
  Age: 63 Year
  Sex: Male

DRUGS (7)
  1. AGGRASTAT [Suspect]
     Indication: ACUTE MYOCARDIAL INFARCTION
     Dosage: INTRAVENOUS (NOT OTHERWISE SPECIFIED) ICH CODE 042
     Route: 042
     Dates: start: 20061108, end: 20061109
  2. AGGRASTAT [Suspect]
     Indication: ANGINA UNSTABLE
     Dosage: INTRAVENOUS (NOT OTHERWISE SPECIFIED) ICH CODE 042
     Route: 042
     Dates: start: 20061108, end: 20061109
  3. BISOPROLOL FUMARATE [Concomitant]
  4. ISOSORBIDE DINITRATE [Concomitant]
  5. LOVENOX [Concomitant]
  6. PLAVIX (CLIPODOGREL BISULFATE) [Concomitant]
  7. ASPIRIN [Concomitant]

REACTIONS (1)
  - THROMBOCYTOPENIA [None]
